FAERS Safety Report 7557919-2 (Version None)
Quarter: 2011Q2

REPORT INFORMATION
  Report Type: 
  Country: None (occurrence: None)
  Receive Date: 20110620
  Receipt Date: 20110608
  Transmission Date: 20111010
  Serious: Yes (Other)
  Sender: FDA-Public Use
  Company Number: A0931781A

PATIENT
  Age: 55 Year
  Sex: Male

DRUGS (1)
  1. PROMACTA [Suspect]
     Indication: THROMBOCYTOPENIA

REACTIONS (1)
  - LIBIDO DECREASED [None]
